FAERS Safety Report 9817158 (Version 3)
Quarter: 2014Q3

REPORT INFORMATION
  Report Type: Spontaneous
  Country: US (occurrence: US)
  Receive Date: 20140114
  Receipt Date: 20140730
  Transmission Date: 20150326
  Serious: No
  Sender: FDA-Public Use
  Company Number: US-009507513-1401USA004747

PATIENT
  Sex: Female

DRUGS (1)
  1. NUVARING [Suspect]
     Active Substance: ETHINYL ESTRADIOL\ETONOGESTREL
     Indication: HORMONE REPLACEMENT THERAPY
     Dosage: UNK
     Route: 067
     Dates: start: 200911, end: 20100108

REACTIONS (5)
  - Sebaceous cyst excision [Unknown]
  - Varicose vein [Unknown]
  - Deep vein thrombosis [Recovering/Resolving]
  - Off label use [Recovered/Resolved]
  - Phlebitis superficial [Unknown]

NARRATIVE: CASE EVENT DATE: 200911
